FAERS Safety Report 23276208 (Version 1)
Quarter: 2023Q4

REPORT INFORMATION
  Report Type: Spontaneous
  Country: DE (occurrence: DE)
  Receive Date: 20231208
  Receipt Date: 20231208
  Transmission Date: 20240110
  Serious: Yes (Other)
  Sender: FDA-Public Use
  Company Number: DE-STADA-00291139

PATIENT
  Age: 37 Year
  Sex: Female

DRUGS (7)
  1. OFLOXACIN [Suspect]
     Active Substance: OFLOXACIN
     Indication: Product used for unknown indication
     Dosage: 1 GRAM, 1 TOTAL (2011, 2016)
     Route: 065
  2. CIPROFLOXACIN [Suspect]
     Active Substance: CIPROFLOXACIN
     Indication: Cystitis escherichia
     Dosage: 2.5 GRAM, 1 TOTAL (2009, 2011)
     Route: 065
  3. CIPROFLOXACIN [Suspect]
     Active Substance: CIPROFLOXACIN
     Indication: Cystitis escherichia
     Dosage: 1000 MILLIGRAM, QD
     Route: 048
     Dates: start: 20180727
  4. LEVOFLOXACIN [Suspect]
     Active Substance: LEVOFLOXACIN
     Indication: Product used for unknown indication
     Dosage: 5 GRAM, 1 TOTAL
     Route: 065
     Dates: start: 2015
  5. METRONIDAZOLE [Concomitant]
     Active Substance: METRONIDAZOLE
     Indication: Trichomoniasis
     Dosage: UNK
     Route: 065
     Dates: start: 201805
  6. FOSFOMYCIN TROMETHAMINE [Concomitant]
     Active Substance: FOSFOMYCIN TROMETHAMINE
     Indication: Urinary tract infection
     Dosage: UNK
     Route: 048
     Dates: start: 201805
  7. TRIMETHOPRIM [Concomitant]
     Active Substance: TRIMETHOPRIM
     Indication: Urinary tract infection
     Dosage: UNK
     Route: 065
     Dates: start: 201806

REACTIONS (5)
  - Spinal disorder [Not Recovered/Not Resolved]
  - Mitochondrial cytopathy [Not Recovered/Not Resolved]
  - Chronic fatigue syndrome [Not Recovered/Not Resolved]
  - Muscle atrophy [Not Recovered/Not Resolved]
  - Muscular weakness [Not Recovered/Not Resolved]
